FAERS Safety Report 18526808 (Version 1)
Quarter: 2020Q4

REPORT INFORMATION
  Report Type: Spontaneous
  Country: ES (occurrence: ES)
  Receive Date: 20201120
  Receipt Date: 20201120
  Transmission Date: 20210114
  Serious: Yes (Other)
  Sender: FDA-Public Use
  Company Number: ES-GLAXOSMITHKLINE-ES2020225251

PATIENT
  Age: 25 Year
  Sex: Female

DRUGS (11)
  1. OMEPRAZOL CINFA [Concomitant]
     Indication: GASTROOESOPHAGEAL REFLUX DISEASE
     Dosage: 40 MG, QD (40MG ONCE A DAY (MORNINGS))
     Route: 065
     Dates: start: 2017
  2. ZONEGRAN [Concomitant]
     Active Substance: ZONISAMIDE
     Indication: FEEDING DISORDER
     Dosage: 100 MG, QD (100 MG ONCE A DAY (NIGHT))
     Route: 065
     Dates: start: 201908
  3. NUVARING [Concomitant]
     Active Substance: ETHINYL ESTRADIOL\ETONOGESTREL
     Indication: CONTRACEPTION
     Dosage: 1 DF (1 RING EVERY 3 WEEKS)
     Route: 065
     Dates: start: 201809
  4. CETIRIZINA CINFA [Concomitant]
     Indication: HYPERSENSITIVITY
     Dosage: UNK (10 MG ONCE A DAY (MORNING))
     Route: 065
     Dates: start: 2017
  5. MOMETASONE FUROATE. [Concomitant]
     Active Substance: MOMETASONE FUROATE
     Indication: ALLERGY TO ANIMAL
     Dosage: 2 DF, QD (2 SPRAYS PER NOSTRIL ONCE A DAY (MORNINGS)
     Route: 065
     Dates: start: 201910
  6. ELONTRIL [Suspect]
     Active Substance: BUPROPION HYDROCHLORIDE
     Indication: DEPRESSION
     Dosage: 150 MG, QD (150 MG ONCE A DAY (MORNING))
     Route: 048
     Dates: start: 201908
  7. VITAMIN B12 [Concomitant]
     Active Substance: CYANOCOBALAMIN
     Indication: VITAMIN SUPPLEMENTATION
     Dosage: 1 DF, QD (2000 MCG (ONE LOZENGE) ONCE A DAY)
     Route: 065
     Dates: start: 201810
  8. PARACETAMOL CINFA [Concomitant]
     Indication: PAIN
     Dosage: 1 G (1 G EVERY 6-8 HOURS (ACCORDING TO PAIN INTENSITY))
     Route: 065
     Dates: start: 201709
  9. VANDRAL RETARD [Concomitant]
     Active Substance: VENLAFAXINE HYDROCHLORIDE
     Indication: FEEDING DISORDER
     Dosage: 150 MG, QD (150 MG ONCE A DAY (MORNING))
     Route: 065
     Dates: start: 201905, end: 20201030
  10. DOBUPAL RETARD [Concomitant]
     Active Substance: VENLAFAXINE HYDROCHLORIDE
     Indication: FEEDING DISORDER
     Dosage: 75 MG, QD (75MG ONCE A DAY (MORNING))
     Route: 065
     Dates: start: 20201031
  11. NOLOTIL (METAMIZOLE MAGNESIUM) [Concomitant]
     Active Substance: METAMIZOLE MAGNESIUM
     Indication: ARTHRALGIA
     Dosage: 575 MG (575MG EVERY 6-8 HOURS, INTERSPERSED WITH PARACETAMOL ACCORDING TO PAIN INTENSITY)
     Route: 065
     Dates: start: 201709

REACTIONS (6)
  - Headache [Recovered/Resolved]
  - Product residue present [Recovered/Resolved]
  - Abdominal discomfort [Recovered/Resolved]
  - Nausea [Recovered/Resolved]
  - Dizziness [Recovered/Resolved]
  - Diarrhoea [Recovering/Resolving]

NARRATIVE: CASE EVENT DATE: 20201102
